FAERS Safety Report 4491329-X (Version None)
Quarter: 2004Q4

REPORT INFORMATION
  Report Type: 
  Country: None (occurrence: None)
  Receive Date: 20041101
  Receipt Date: 20041101
  Transmission Date: 20050328
  Serious: No
  Sender: FDA-Public Use
  Company Number: None

PATIENT
  Age: 21 Year
  Sex: Male
  Weight: 128.1 kg

DRUGS (3)
  1. KETOROLAC [Suspect]
     Indication: POSTOPERATIVE CARE
     Dosage: 30 MG INTRAVENOU
     Route: 042
     Dates: start: 20040913, end: 20040913
  2. NEOSTIGMINE [Concomitant]
  3. GLYCOPYRROLATE [Concomitant]

REACTIONS (3)
  - HYPOTENSION [None]
  - OXYGEN SATURATION DECREASED [None]
  - TACHYCARDIA [None]
